FAERS Safety Report 8110844-0 (Version None)
Quarter: 2012Q1

REPORT INFORMATION
  Report Type: 
  Country: None (occurrence: None)
  Receive Date: 20120203
  Receipt Date: 20120126
  Transmission Date: 20120608
  Serious: Yes (Other)
  Sender: FDA-Public Use
  Company Number: US-US-EMD SERONO, INC.-7109700

PATIENT
  Sex: Female

DRUGS (1)
  1. REBIF [Suspect]
     Indication: MULTIPLE SCLEROSIS
     Route: 058
     Dates: start: 20020124

REACTIONS (4)
  - INFLUENZA LIKE ILLNESS [None]
  - ANAEMIA [None]
  - COELIAC DISEASE [None]
  - MUSCLE SPASMS [None]
